FAERS Safety Report 18816919 (Version 4)
Quarter: 2021Q1

REPORT INFORMATION
  Report Type: Report from Study
  Country: DE (occurrence: DE)
  Receive Date: 20210201
  Receipt Date: 20210316
  Transmission Date: 20210419
  Serious: Yes (Hospitalization, Other)
  Sender: FDA-Public Use
  Company Number: DE-BRISTOL-MYERS SQUIBB COMPANY-BMS-2018-077901

PATIENT
  Age: 76 Year
  Sex: Male

DRUGS (19)
  1. NIVOLUMAB [Suspect]
     Active Substance: NIVOLUMAB
     Dosage: 71 MILLIGRAM, Q3WK
     Route: 042
     Dates: start: 20180126, end: 20180126
  2. NIVOLUMAB [Suspect]
     Active Substance: NIVOLUMAB
     Dosage: 223.5 MILLIGRAM, Q2WK
     Route: 065
     Dates: start: 20180601, end: 20180601
  3. IPILIMUMAB [Suspect]
     Active Substance: IPILIMUMAB
     Dosage: 213 MILLIGRAM, Q3WK
     Route: 042
     Dates: start: 20180126, end: 20180126
  4. IPILIMUMAB [Suspect]
     Active Substance: IPILIMUMAB
     Dosage: 208.5 MILLIGRAM, Q3WK
     Route: 042
     Dates: start: 20180216, end: 20180216
  5. PREDNICARBATE. [Concomitant]
     Active Substance: PREDNICARBATE
     Indication: PRODUCT USED FOR UNKNOWN INDICATION
     Dosage: UNK
     Route: 065
  6. MOMETASONE FUROATE. [Concomitant]
     Active Substance: MOMETASONE FUROATE
     Indication: PRODUCT USED FOR UNKNOWN INDICATION
     Dosage: UNK
     Route: 065
  7. NIVOLUMAB [Suspect]
     Active Substance: NIVOLUMAB
     Dosage: 222.6 MILLIGRAM, Q2WK
     Route: 065
     Dates: start: 20180615, end: 20180615
  8. IPILIMUMAB [Suspect]
     Active Substance: IPILIMUMAB
     Dosage: 213 MILLIGRAM, Q3WK
     Route: 042
     Dates: start: 20180309, end: 20180309
  9. HYDROCORTISONE. [Concomitant]
     Active Substance: HYDROCORTISONE
     Indication: PRODUCT USED FOR UNKNOWN INDICATION
     Dosage: UNK
     Route: 065
  10. NIVOLUMAB [Suspect]
     Active Substance: NIVOLUMAB
     Indication: MALIGNANT MELANOMA
     Dosage: 70 MILLIGRAM, Q3WK
     Route: 042
     Dates: start: 20180108, end: 20180108
  11. NIVOLUMAB [Suspect]
     Active Substance: NIVOLUMAB
     Dosage: 216 MILLIGRAM, Q2WK
     Route: 065
     Dates: start: 20180504, end: 20180504
  12. BUDESONIDE. [Concomitant]
     Active Substance: BUDESONIDE
     Indication: PRODUCT USED FOR UNKNOWN INDICATION
     Dosage: UNK
     Route: 065
  13. NIVOLUMAB [Suspect]
     Active Substance: NIVOLUMAB
     Dosage: 219 MILLIGRAM, Q2WK
     Route: 065
     Dates: start: 20180420, end: 20180420
  14. NIVOLUMAB [Suspect]
     Active Substance: NIVOLUMAB
     Dosage: 225 MILLIGRAM, Q2WK
     Route: 065
     Dates: start: 20180703, end: 20180703
  15. NIVOLUMAB [Suspect]
     Active Substance: NIVOLUMAB
     Dosage: 480 MILLIGRAM, Q4WK
     Route: 042
     Dates: start: 20181026, end: 20200710
  16. IPILIMUMAB [Suspect]
     Active Substance: IPILIMUMAB
     Indication: MALIGNANT MELANOMA
     Dosage: 210 MILLIGRAM, Q3WK
     Route: 042
     Dates: start: 20180108, end: 20180108
  17. NIVOLUMAB [Suspect]
     Active Substance: NIVOLUMAB
     Dosage: 69.5 MILLIGRAM, Q3WK
     Route: 042
     Dates: start: 20180216, end: 20180216
  18. NIVOLUMAB [Suspect]
     Active Substance: NIVOLUMAB
     Dosage: 71 MILLIGRAM, Q3WK
     Route: 042
     Dates: start: 20180309, end: 20180309
  19. NIVOLUMAB [Suspect]
     Active Substance: NIVOLUMAB
     Dosage: 222 MILLIGRAM, Q2WK
     Route: 065
     Dates: start: 20180518, end: 20180518

REACTIONS (8)
  - Restless legs syndrome [Not Recovered/Not Resolved]
  - Malignant neoplasm progression [Not Recovered/Not Resolved]
  - Chronic kidney disease [Not Recovered/Not Resolved]
  - Immune-mediated enterocolitis [Recovered/Resolved]
  - Palpitations [Not Recovered/Not Resolved]
  - Autoimmune nephritis [Recovered/Resolved]
  - Paraesthesia [Unknown]
  - Dyspnoea exertional [Not Recovered/Not Resolved]

NARRATIVE: CASE EVENT DATE: 20180126
